FAERS Safety Report 13330408 (Version 1)
Quarter: 2017Q1

REPORT INFORMATION
  Report Type: Other
  Country: ES (occurrence: ES)
  Receive Date: 20170314
  Receipt Date: 20170314
  Transmission Date: 20170428
  Serious: Yes (Other)
  Sender: FDA-Public Use
  Company Number: ES-HETERO LABS LTD-1064212

PATIENT
  Age: 45 Year
  Sex: Male

DRUGS (4)
  1. EVEROLIMUS [Suspect]
     Active Substance: EVEROLIMUS
     Route: 065
  2. VALGANCICLOVIR. [Suspect]
     Active Substance: VALGANCICLOVIR
     Indication: CYTOMEGALOVIRUS INFECTION
     Route: 048
  3. FOSCARNET [Suspect]
     Active Substance: FOSCARNET
     Route: 042
  4. CYCLOSPORINE. [Suspect]
     Active Substance: CYCLOSPORINE
     Route: 065

REACTIONS (7)
  - Muscle spasms [Unknown]
  - Cytomegalovirus colitis [Recovered/Resolved]
  - Neutropenia [Unknown]
  - Diarrhoea [Recovered/Resolved]
  - Hypocalcaemia [Unknown]
  - Renal impairment [Unknown]
  - Drug resistance [Unknown]
